FAERS Safety Report 4579374-7 (Version None)
Quarter: 2005Q1

REPORT INFORMATION
  Report Type: 
  Country: None (occurrence: None)
  Receive Date: 20050210
  Receipt Date: 20050210
  Transmission Date: 20050727
  Serious: Yes (Hospitalization)
  Sender: FDA-Public Use
  Company Number: None

PATIENT
  Age: 51 Year
  Sex: Male
  Weight: 76.4 kg

DRUGS (2)
  1. GEMCITABINE [Suspect]
     Indication: NON-SMALL CELL LUNG CANCER STAGE IV
     Dosage: 1250 MG/M2 DAY 1 + 8 Q21D INTRAVENOU
     Route: 042
     Dates: start: 20041124, end: 20050125
  2. CARBOPLATIN [Suspect]
     Dosage: AUC OF 5 Q21 DAYS INTRAVENOU
     Route: 042
     Dates: start: 20041124, end: 20050125

REACTIONS (3)
  - BONE MARROW DEPRESSION [None]
  - DYSPNOEA EXACERBATED [None]
  - PO2 DECREASED [None]
